FAERS Safety Report 4431392-5 (Version None)
Quarter: 2004Q3

REPORT INFORMATION
  Report Type: 
  Country: None (occurrence: None)
  Receive Date: 20040820
  Receipt Date: 20040820
  Transmission Date: 20050211
  Serious: No
  Sender: FDA-Public Use
  Company Number: None

PATIENT
  Age: 55 Year
  Sex: Female
  Weight: 72.5755 kg

DRUGS (4)
  1. COPAXONE [Suspect]
     Dosage: 20 MG SC DAILY
     Route: 058
     Dates: start: 19870101, end: 20040731
  2. VIOXX [Concomitant]
  3. PREMARIN [Concomitant]
  4. AVAPRO [Concomitant]

REACTIONS (1)
  - SERONEGATIVE ARTHRITIS [None]
